FAERS Safety Report 7366780-0 (Version None)
Quarter: 2011Q1

REPORT INFORMATION
  Report Type: 
  Country: None (occurrence: None)
  Receive Date: 20110322
  Receipt Date: 20110316
  Transmission Date: 20110831
  Serious: Yes (Death, Hospitalization)
  Sender: FDA-Public Use
  Company Number: US-ROCHE-758903

PATIENT
  Sex: Male
  Weight: 76.7 kg

DRUGS (33)
  1. FOLIC ACID [Concomitant]
     Dates: start: 20021227
  2. FUROSEMIDE [Concomitant]
     Dates: start: 19980901
  3. PERCOCET-5 [Concomitant]
     Dosage: DRUG NAME PERCOCET 5/325
     Dates: start: 20101019
  4. TOCILIZUMAB [Suspect]
     Route: 042
     Dates: start: 20110117
  5. ASPIRIN [Concomitant]
     Dates: start: 19980904
  6. MIRALAX [Concomitant]
     Dosage: TDD: 2 CAPSULES OD
     Dates: start: 20061207
  7. NIFEREX FORTE [Concomitant]
     Dates: start: 20050824
  8. AIRTAL [Concomitant]
     Dosage: DRUG NAME REPORTED AS AICLOFENAC
     Dates: start: 20041202
  9. DARVOCET-N 100 [Concomitant]
     Dosage: TDD: 650/100 MG
  10. LASIX [Concomitant]
     Dates: start: 20091128
  11. TOCILIZUMAB [Suspect]
     Route: 042
     Dates: start: 20100831
  12. ASPIRIN [Concomitant]
     Dates: start: 20090521
  13. OCUVITE LUTEIN [Concomitant]
     Dosage: TDD: 4 TAB GD
     Dates: start: 20070410
  14. DIGOXIN [Concomitant]
     Dates: start: 20060901
  15. TOCILIZUMAB [Suspect]
     Indication: RHEUMATOID ARTHRITIS
     Dosage: PATIENT WAS PREVIOUSLY ENROLLED IN STUDY WA18063.
     Route: 042
  16. TOCILIZUMAB [Suspect]
     Dosage: FORM: INFUSION.
     Route: 042
     Dates: start: 20050809
  17. OMEPRAZOLE [Concomitant]
     Dates: start: 20060125
  18. ATENOLOL [Concomitant]
     Dates: start: 20020601
  19. DICLOFENAC [Concomitant]
     Dosage: TDD REPORTED AS 150
     Dates: start: 20041202
  20. CALCITRIOL [Concomitant]
  21. AMIODARONE HCL [Concomitant]
  22. TOCILIZUMAB [Suspect]
     Route: 042
     Dates: start: 20101220
  23. PREDNISONE [Concomitant]
     Route: 048
     Dates: start: 19980904
  24. VITAMIN D [Concomitant]
     Dosage: TDD: 50000IU
     Dates: start: 20080201
  25. AMBIEN [Concomitant]
  26. ASTELIN [Concomitant]
  27. METHOTREXATE [Concomitant]
     Route: 048
     Dates: start: 20020129
  28. ACETAMINOPHEN AND OXYCODONE HCL [Concomitant]
     Dosage: TDD: PRN 2 TABS
     Dates: start: 20101019
  29. ACETAMINOPHEN [Concomitant]
     Dosage: DRUG NAME REPORTED AS TYLENOL ES.
     Dates: start: 20011109
  30. PRAVACHOL [Concomitant]
  31. TOCILIZUMAB [Suspect]
     Route: 042
     Dates: start: 19980904
  32. TOCILIZUMAB [Suspect]
     Route: 042
     Dates: start: 20100927
  33. METHOTREXATE [Concomitant]
     Dosage: TDD: 15 MG/WEEK
     Route: 048
     Dates: start: 20070618, end: 20110209

REACTIONS (2)
  - PANCYTOPENIA [None]
  - PNEUMONIA [None]
